FAERS Safety Report 7758053-9 (Version None)
Quarter: 2011Q3

REPORT INFORMATION
  Report Type: 
  Country: None (occurrence: None)
  Receive Date: 20110919
  Receipt Date: 20110909
  Transmission Date: 20111222
  Serious: No
  Sender: FDA-Public Use
  Company Number: US-BIOGENIDEC-2011BI034997

PATIENT
  Age: 29 Year
  Sex: Male

DRUGS (4)
  1. PROVIGIL [Concomitant]
     Indication: FATIGUE
     Dates: start: 20080101
  2. INSULIN [Concomitant]
     Indication: BLOOD GLUCOSE INCREASED
     Dates: start: 20070101, end: 20070101
  3. TYSABRI [Suspect]
     Indication: MULTIPLE SCLEROSIS
     Route: 042
     Dates: start: 20090301, end: 20110801
  4. NEURONTIN [Concomitant]
     Indication: HYPOAESTHESIA
     Dates: start: 20090101

REACTIONS (1)
  - MULTIPLE SCLEROSIS RELAPSE [None]
